FAERS Safety Report 24039069 (Version 2)
Quarter: 2024Q3

REPORT INFORMATION
  Report Type: Spontaneous
  Country: US (occurrence: US)
  Receive Date: 20240702
  Receipt Date: 20240705
  Transmission Date: 20241017
  Serious: No
  Sender: AMGEN
  Company Number: US-AMGEN-USASP2024128905

PATIENT

DRUGS (2)
  1. RIABNI [Suspect]
     Active Substance: RITUXIMAB-ARRX
     Indication: Product used for unknown indication
     Dosage: DOSE: 600 MILLIGRAM, (STRENGTH: 100MG/10ML)
     Route: 065
  2. RIABNI [Suspect]
     Active Substance: RITUXIMAB-ARRX
     Dosage: DOSE: 600 MILLIGRAM, (STRENGTH: 500MG/50ML)
     Route: 065

REACTIONS (1)
  - Intercepted product preparation error [Unknown]
